FAERS Safety Report 23165600 (Version 2)
Quarter: 2023Q4

REPORT INFORMATION
  Report Type: Spontaneous
  Country: US (occurrence: US)
  Receive Date: 20231109
  Receipt Date: 20231208
  Transmission Date: 20240110
  Serious: Yes (Hospitalization, Other)
  Sender: FDA-Public Use
  Company Number: US-ANIPHARMA-2023-US-028663

PATIENT
  Age: 71 Year
  Sex: Female

DRUGS (8)
  1. CORTICOTROPIN [Suspect]
     Active Substance: CORTICOTROPIN
     Indication: Rheumatoid arthritis
     Dosage: INJECT 80 UNITS (1ML) SUBCUTANEOUSLY TWO TIMES PER WEEK
     Route: 058
     Dates: start: 202308
  2. ATORVASTATIN CALCIUM [Concomitant]
     Active Substance: ATORVASTATIN CALCIUM
     Route: 065
  3. VITAMIN D [Concomitant]
     Active Substance: VITAMIN D NOS
     Route: 065
  4. NOVOLOG [Concomitant]
     Active Substance: INSULIN ASPART
     Route: 065
  5. LEVOTHYROXINE SODIUM [Concomitant]
     Active Substance: LEVOTHYROXINE SODIUM
     Route: 065
  6. LOSARTAN POTASSIUM [Concomitant]
     Active Substance: LOSARTAN POTASSIUM
     Route: 065
  7. CIPRO [Suspect]
     Active Substance: CIPROFLOXACIN HYDROCHLORIDE
     Route: 065
     Dates: start: 202310
  8. PREDNISONE [Suspect]
     Active Substance: PREDNISONE
     Dosage: 2 TABLETS TWICE DAILY / 1 TABLET TWICE DAILY / BACK TO 2 TABLETS TWICE DAILY
     Route: 065

REACTIONS (12)
  - Therapeutic product effect incomplete [Not Recovered/Not Resolved]
  - Alopecia [Unknown]
  - Cushingoid [Unknown]
  - Myalgia [Unknown]
  - Drug ineffective [Not Recovered/Not Resolved]
  - Laboratory test abnormal [Unknown]
  - Skin mass [Unknown]
  - Vision blurred [Unknown]
  - Peripheral swelling [Unknown]
  - Joint swelling [Unknown]
  - Kidney infection [Unknown]
  - Urinary tract infection [Unknown]

NARRATIVE: CASE EVENT DATE: 20231005
